FAERS Safety Report 14185843 (Version 1)
Quarter: 2017Q4

REPORT INFORMATION
  Report Type: Spontaneous
  Country: US (occurrence: None)
  Receive Date: 20171112
  Receipt Date: 20171112
  Transmission Date: 20180321
  Serious: No
  Sender: FDA-Public Use
  Company Number: None

PATIENT
  Age: 68 Year
  Sex: Male

DRUGS (1)
  1. ZYTIGA [Suspect]
     Active Substance: ABIRATERONE ACETATE
     Indication: PRODUCT USED FOR UNKNOWN INDICATION
     Dosage: 1000MG ONCE DAILY ORALLY
     Route: 048
     Dates: start: 20170421, end: 20170915

REACTIONS (3)
  - Anaemia [None]
  - Lymphopenia [None]
  - Full blood count decreased [None]

NARRATIVE: CASE EVENT DATE: 20170915
